FAERS Safety Report 6406412-9 (Version None)
Quarter: 2009Q4

REPORT INFORMATION
  Report Type: 
  Country: None (occurrence: None)
  Receive Date: 20091019
  Receipt Date: 20091005
  Transmission Date: 20100525
  Serious: Yes (Life-Threatening)
  Sender: FDA-Public Use
  Company Number: GB-MYLANLABS-2009S1017428

PATIENT
  Age: 35 Year
  Sex: Male
  Weight: 72 kg

DRUGS (4)
  1. VENLAFAXINE [Suspect]
     Indication: DEPRESSION
     Route: 048
     Dates: start: 20080827
  2. ZOPICLONE [Suspect]
     Indication: INSOMNIA
     Route: 048
     Dates: start: 20081007, end: 20090903
  3. ALBUTEROL SULFATE AUTOHALER [Concomitant]
     Indication: ASTHMA
     Route: 055
  4. SEREVENT [Concomitant]
     Indication: ASTHMA
     Route: 055

REACTIONS (2)
  - ABNORMAL SLEEP-RELATED EVENT [None]
  - SOMNAMBULISM [None]
